FAERS Safety Report 21964061 (Version 1)
Quarter: 2023Q1

REPORT INFORMATION
  Report Type: Spontaneous
  Country: US (occurrence: None)
  Receive Date: 20230206
  Receipt Date: 20230206
  Transmission Date: 20230417
  Serious: Yes (Hospitalization, Disabling)
  Sender: FDA-Public Use
  Company Number: None

PATIENT
  Age: 67 Year
  Sex: Female

DRUGS (14)
  1. CAPECITABINE [Suspect]
     Active Substance: CAPECITABINE
     Indication: Breast cancer female
     Dosage: FREQUENCY : TWICE A DAY;?
     Route: 048
     Dates: start: 20221015, end: 20230125
  2. LETROZOLE [Concomitant]
     Active Substance: LETROZOLE
  3. MS CONTIN [Concomitant]
  4. NORCO [Concomitant]
     Active Substance: ACETAMINOPHEN\HYDROCODONE BITARTRATE
  5. CLONAZEPAM [Concomitant]
     Active Substance: CLONAZEPAM
  6. ONDANSETRON [Concomitant]
     Active Substance: ONDANSETRON
  7. LASIX [Concomitant]
     Active Substance: FUROSEMIDE
  8. Protonix [Concomitant]
  9. DILTIAZEM [Suspect]
     Active Substance: DILTIAZEM
  10. ATENOLOL [Concomitant]
     Active Substance: ATENOLOL
  11. METFORMIN [Concomitant]
     Active Substance: METFORMIN HYDROCHLORIDE
  12. Effexor XR [Concomitant]
  13. ALLOPURINOL [Concomitant]
     Active Substance: ALLOPURINOL
  14. MONTELUKAST [Concomitant]
     Active Substance: MONTELUKAST SODIUM

REACTIONS (4)
  - Diarrhoea [None]
  - Oxygen saturation decreased [None]
  - Blood creatinine increased [None]
  - Hyperkalaemia [None]

NARRATIVE: CASE EVENT DATE: 20230125
